FAERS Safety Report 18545142 (Version 9)
Quarter: 2025Q2

REPORT INFORMATION
  Report Type: Report from Study
  Country: CA (occurrence: CA)
  Receive Date: 20201125
  Receipt Date: 20250623
  Transmission Date: 20250716
  Serious: Yes (Hospitalization, Other)
  Sender: TAKEDA
  Company Number: CA-TAKEDA-2020TUS030185

PATIENT
  Sex: Male

DRUGS (16)
  1. VEDOLIZUMAB [Suspect]
     Active Substance: VEDOLIZUMAB
     Indication: Crohn^s disease
  2. VEDOLIZUMAB [Suspect]
     Active Substance: VEDOLIZUMAB
     Dosage: 300 MILLIGRAM, Q4WEEKS
     Dates: start: 20200821
  3. VEDOLIZUMAB [Suspect]
     Active Substance: VEDOLIZUMAB
  4. VEDOLIZUMAB [Suspect]
     Active Substance: VEDOLIZUMAB
     Dosage: 300 MILLIGRAM, Q4WEEKS
     Dates: start: 20230406
  5. VEDOLIZUMAB [Suspect]
     Active Substance: VEDOLIZUMAB
  6. AMITRIPTYLINE [Suspect]
     Active Substance: AMITRIPTYLINE
     Indication: Abdominal pain
  7. PREDNISONE [Concomitant]
     Active Substance: PREDNISONE
     Indication: Abdominal pain
  8. PREDNISONE [Concomitant]
     Active Substance: PREDNISONE
     Indication: Diarrhoea
  9. CODEINE [Concomitant]
     Active Substance: CODEINE
     Dosage: 90 MILLIGRAM, TID
  10. LOMOTIL [Concomitant]
     Active Substance: ATROPINE SULFATE\DIPHENOXYLATE HYDROCHLORIDE
     Dosage: UNK UNK, BID
  11. APIXABAN [Concomitant]
     Active Substance: APIXABAN
     Dosage: 5 MILLIGRAM, BID
  12. FLORINEF ACETATE [Concomitant]
     Active Substance: FLUDROCORTISONE ACETATE
     Dosage: 0.5 MILLIGRAM, QD
  13. HYDROMORPHONE [Concomitant]
     Active Substance: HYDROMORPHONE
  14. HYDROMORPHONE [Concomitant]
     Active Substance: HYDROMORPHONE
     Dosage: UNK UNK, TID
  15. PREGABALIN [Concomitant]
     Active Substance: PREGABALIN
  16. CANDESARTAN [Concomitant]
     Active Substance: CANDESARTAN

REACTIONS (30)
  - Crohn^s disease [Not Recovered/Not Resolved]
  - Hip fracture [Unknown]
  - Subdural haematoma [Unknown]
  - Multiple fractures [Unknown]
  - Pancreatitis [Unknown]
  - Oesophageal candidiasis [Unknown]
  - Fall [Unknown]
  - Pneumothorax [Unknown]
  - Rib fracture [Unknown]
  - Rectal haemorrhage [Unknown]
  - Respiratory disorder [Unknown]
  - Weight decreased [Unknown]
  - Diarrhoea [Unknown]
  - Neurological symptom [Unknown]
  - Hypoalbuminaemia [Unknown]
  - Road traffic accident [Unknown]
  - Mobility decreased [Unknown]
  - Blood magnesium decreased [Unknown]
  - Retching [Unknown]
  - Haematuria [Unknown]
  - Pancreatic pseudocyst [Unknown]
  - Rectal prolapse [Unknown]
  - Irritable bowel syndrome [Unknown]
  - Colorectal adenoma [Unknown]
  - Pain [Unknown]
  - Toxicity to various agents [Unknown]
  - Abdominal pain [Unknown]
  - Arthralgia [Unknown]
  - Nausea [Unknown]
  - Fatigue [Unknown]

NARRATIVE: CASE EVENT DATE: 20210101
